FAERS Safety Report 9722026 (Version 1)
Quarter: 2013Q4

REPORT INFORMATION
  Report Type: Spontaneous
  Country: US (occurrence: US)
  Receive Date: 20131202
  Receipt Date: 20131202
  Transmission Date: 20140711
  Serious: No
  Sender: FDA-Public Use
  Company Number: US-BIOGENIDEC-2013BI081598

PATIENT
  Age: 44 Year
  Sex: Male

DRUGS (12)
  1. TECFIDERA [Suspect]
     Indication: MULTIPLE SCLEROSIS
     Route: 048
     Dates: start: 20130804
  2. TECFIDERA [Suspect]
     Indication: MULTIPLE SCLEROSIS
     Route: 048
  3. KLONOPIN [Concomitant]
  4. BENEFIBER [Concomitant]
  5. RITALIN [Concomitant]
  6. GABAPENTIN [Concomitant]
  7. BACLOFEN [Concomitant]
  8. AMPYRA ER [Concomitant]
  9. WELLBUTRIN XL [Concomitant]
  10. CALCIUM 600 + DE SOFTGEL [Concomitant]
  11. CVS VITAMIN D [Concomitant]
  12. CVS MEGA MULTIVITAMIN TAB [Concomitant]

REACTIONS (3)
  - Flushing [Not Recovered/Not Resolved]
  - Diarrhoea [Recovered/Resolved]
  - Abdominal pain [Recovered/Resolved]
